FAERS Safety Report 19372476 (Version 2)
Quarter: 2021Q2

REPORT INFORMATION
  Report Type: Spontaneous
  Country: US (occurrence: US)
  Receive Date: 20210604
  Receipt Date: 20210608
  Transmission Date: 20210717
  Serious: No
  Sender: FDA-Public Use
  Company Number: US-JNJFOC-20210558415

PATIENT
  Age: 21 Year
  Sex: Female
  Weight: 58.51 kg

DRUGS (2)
  1. TYLENOL [Suspect]
     Active Substance: ACETAMINOPHEN
     Indication: ARTHRALGIA
     Route: 065
  2. COVID?19 VACCINE [Concomitant]
     Indication: IMMUNISATION
     Dosage: DOSE 2
     Route: 065
     Dates: start: 20210517

REACTIONS (1)
  - Drug ineffective [Unknown]

NARRATIVE: CASE EVENT DATE: 20210518
